FAERS Safety Report 24648521 (Version 1)
Quarter: 2024Q4

REPORT INFORMATION
  Report Type: Spontaneous
  Country: EG (occurrence: EG)
  Receive Date: 20241121
  Receipt Date: 20241121
  Transmission Date: 20250115
  Serious: Yes (Other)
  Sender: ASTELLAS
  Company Number: EG-ASTELLAS-2024-AER-019004

PATIENT
  Age: 7 Decade
  Sex: Male

DRUGS (1)
  1. ENFORTUMAB VEDOTIN [Suspect]
     Active Substance: ENFORTUMAB VEDOTIN
     Indication: Product used for unknown indication
     Route: 065

REACTIONS (3)
  - Colon cancer metastatic [Unknown]
  - Bladder cancer [Unknown]
  - General physical health deterioration [Unknown]
